FAERS Safety Report 12955988 (Version 2)
Quarter: 2016Q4

REPORT INFORMATION
  Report Type: Spontaneous
  Country: JP (occurrence: JP)
  Receive Date: 20161118
  Receipt Date: 20161229
  Transmission Date: 20170207
  Serious: Yes (Other)
  Sender: FDA-Public Use
  Company Number: JP-009507513-1611JPN008882

PATIENT
  Age: 85 Year
  Sex: Male

DRUGS (2)
  1. GLACTIV [Suspect]
     Active Substance: SITAGLIPTIN
     Indication: TYPE 2 DIABETES MELLITUS
     Dosage: UNK
     Route: 048
  2. GLACTIV [Suspect]
     Active Substance: SITAGLIPTIN
     Indication: TYPE 2 DIABETES MELLITUS
     Dosage: UNK
     Route: 048

REACTIONS (2)
  - Pneumatosis intestinalis [Unknown]
  - Portal venous gas [Recovered/Resolved]
